FAERS Safety Report 9467038 (Version 1)
Quarter: 2013Q3

REPORT INFORMATION
  Report Type: Spontaneous
  Country: DK (occurrence: DK)
  Receive Date: 20130820
  Receipt Date: 20130820
  Transmission Date: 20140515
  Serious: Yes (Other)
  Sender: FDA-Public Use
  Company Number: DK-GLAXOSMITHKLINE-B0807970B

PATIENT
  Age: 24 Year
  Sex: Female

DRUGS (7)
  1. ZOFRAN [Suspect]
     Indication: NAUSEA
     Dosage: 1TAB PER DAY
     Route: 048
  2. POSTAFEN [Concomitant]
     Indication: NAUSEA
  3. PRIMPERAN [Concomitant]
     Indication: NAUSEA
  4. THYCAPZOL [Concomitant]
     Indication: NAUSEA
  5. PROPYLTHIOURACIL [Concomitant]
     Indication: NAUSEA
  6. PYRIDOXINE [Concomitant]
     Route: 065
  7. PANTOLOC [Concomitant]
     Route: 065

REACTIONS (4)
  - Hyperemesis gravidarum [Unknown]
  - Hyperthyroidism [Unknown]
  - Live birth [Unknown]
  - Exposure during pregnancy [Unknown]
